FAERS Safety Report 23222573 (Version 3)
Quarter: 2024Q1

REPORT INFORMATION
  Report Type: Spontaneous
  Country: US (occurrence: US)
  Receive Date: 20231123
  Receipt Date: 20240301
  Transmission Date: 20240410
  Serious: Yes (Other)
  Sender: FDA-Public Use
  Company Number: US-AstraZeneca-CH-00506641A

PATIENT
  Sex: Male

DRUGS (2)
  1. ULTOMIRIS [Suspect]
     Active Substance: RAVULIZUMAB-CWVZ
     Indication: Myasthenia gravis
     Dosage: UNK
     Route: 042
     Dates: start: 202306
  2. SOLIRIS [Suspect]
     Active Substance: ECULIZUMAB
     Indication: Myasthenia gravis
     Dosage: UNK
     Route: 042
     Dates: start: 202207, end: 202306

REACTIONS (14)
  - Lung neoplasm malignant [Unknown]
  - Muscle spasms [Unknown]
  - Dizziness postural [Unknown]
  - Fall [Unknown]
  - Musculoskeletal discomfort [Not Recovered/Not Resolved]
  - Wound [Unknown]
  - Visual impairment [Not Recovered/Not Resolved]
  - Hypoaesthesia [Unknown]
  - Restless legs syndrome [Unknown]
  - Unintentional medical device removal [Unknown]
  - Dizziness [Unknown]
  - Vision blurred [Unknown]
  - Skin wrinkling [Unknown]
  - Altered visual depth perception [Unknown]
